FAERS Safety Report 18882749 (Version 1)
Quarter: 2021Q1

REPORT INFORMATION
  Report Type: Spontaneous
  Country: IT (occurrence: IT)
  Receive Date: 20210211
  Receipt Date: 20210211
  Transmission Date: 20210420
  Serious: Yes (Other)
  Sender: FDA-Public Use
  Company Number: IT-BAUSCH-BL-2021-004210

PATIENT
  Sex: Female

DRUGS (4)
  1. SEROXAT [Suspect]
     Active Substance: PAROXETINE HYDROCHLORIDE
     Dosage: 20 MG
     Route: 065
     Dates: start: 202002
  2. URSODEOXYCHOLIC ACID [Suspect]
     Active Substance: URSODIOL
     Indication: PRIMARY BILIARY CHOLANGITIS
     Dosage: 300 MG, TID
     Route: 065
  3. SEROXAT [Suspect]
     Active Substance: PAROXETINE HYDROCHLORIDE
     Indication: PRODUCT USED FOR UNKNOWN INDICATION
     Dosage: 20 MG
     Route: 065
     Dates: start: 201809, end: 202009
  4. FENOFIBRATE. [Suspect]
     Active Substance: FENOFIBRATE
     Indication: PRIMARY BILIARY CHOLANGITIS
     Dosage: 200 MG, QD
     Route: 065

REACTIONS (6)
  - Primary biliary cholangitis [Unknown]
  - Abnormal dreams [Unknown]
  - Constipation [Unknown]
  - Nightmare [Unknown]
  - Restless legs syndrome [Unknown]
  - Restless arm syndrome [Unknown]

NARRATIVE: CASE EVENT DATE: 201810
